FAERS Safety Report 8166548-1 (Version None)
Quarter: 2012Q1

REPORT INFORMATION
  Report Type: 
  Country: None (occurrence: None)
  Receive Date: 20120227
  Receipt Date: 20110712
  Transmission Date: 20120608
  Serious: Yes (Other)
  Sender: FDA-Public Use
  Company Number: US-BRISTOL-MYERS SQUIBB COMPANY-15870173

PATIENT
  Age: 63 Year
  Sex: Female

DRUGS (1)
  1. TAXOL [Suspect]
     Route: 042
     Dates: start: 20110609

REACTIONS (2)
  - PNEUMONIA [None]
  - HYPOTENSION [None]
